FAERS Safety Report 16202627 (Version 2)
Quarter: 2019Q2

REPORT INFORMATION
  Report Type: Spontaneous
  Country: US (occurrence: US)
  Receive Date: 20190416
  Receipt Date: 20190607
  Transmission Date: 20190711
  Serious: No
  Sender: FDA-Public Use
  Company Number: US-PFIZER INC-2019157381

PATIENT
  Age: 49 Year
  Sex: Female
  Weight: 61.68 kg

DRUGS (2)
  1. GABAPENTIN. [Suspect]
     Active Substance: GABAPENTIN
     Dosage: 1800 MG, UNK
  2. GABAPENTIN. [Suspect]
     Active Substance: GABAPENTIN
     Dosage: 300 MG, UNK

REACTIONS (5)
  - Feeling abnormal [Unknown]
  - Feeling drunk [Unknown]
  - Drug ineffective [Unknown]
  - Dysarthria [Unknown]
  - Somnolence [Unknown]
